FAERS Safety Report 11277105 (Version 2)
Quarter: 2015Q3

REPORT INFORMATION
  Report Type: Report from Study
  Country: TW (occurrence: TW)
  Receive Date: 20150716
  Receipt Date: 20150722
  Transmission Date: 20151125
  Serious: Yes (Hospitalization)
  Sender: FDA-Public Use
  Company Number: TW-GLAXOSMITHKLINE-TW2015GSK099655

PATIENT
  Age: 82 Year
  Sex: Male

DRUGS (1)
  1. DUTASTERIDE. [Suspect]
     Active Substance: DUTASTERIDE
     Indication: UROGENITAL DISORDER

REACTIONS (2)
  - Rotator cuff syndrome [Unknown]
  - Infection [Unknown]

NARRATIVE: CASE EVENT DATE: 20120714
